FAERS Safety Report 19062107 (Version 2)
Quarter: 2021Q2

REPORT INFORMATION
  Report Type: Spontaneous
  Country: US (occurrence: US)
  Receive Date: 20210326
  Receipt Date: 20210430
  Transmission Date: 20210717
  Serious: Yes (Death)
  Sender: FDA-Public Use
  Company Number: US-CELGENEUS-USA-20210306272

PATIENT
  Sex: Male

DRUGS (10)
  1. METHOTREXATE. [Concomitant]
     Active Substance: METHOTREXATE
     Indication: MANTLE CELL LYMPHOMA STAGE IV
     Route: 065
  2. IFOSFAMIDE. [Concomitant]
     Active Substance: IFOSFAMIDE
     Indication: MANTLE CELL LYMPHOMA STAGE IV
     Dosage: WEEKLY 4, REPEATED EVERY 6 MONTHS FOR 3 YEARS
     Route: 041
  3. CYCLOPHOSPHAMIDE. [Concomitant]
     Active Substance: CYCLOPHOSPHAMIDE
     Indication: MANTLE CELL LYMPHOMA STAGE IV
     Dosage: WEEKLY 4, REPEATED EVERY 6 MONTHS FOR 3 YEARS
     Route: 041
  4. DOXORUBICIN [Concomitant]
     Active Substance: DOXORUBICIN
     Indication: MANTLE CELL LYMPHOMA STAGE IV
     Dosage: WEEKLY 4, REPEATED EVERY 6 MONTHS FOR 3 YEARS
     Route: 041
  5. ETOPOSIDE. [Concomitant]
     Active Substance: ETOPOSIDE
     Indication: MANTLE CELL LYMPHOMA STAGE IV
     Dosage: WEEKLY 4, REPEATED EVERY 6 MONTHS FOR 3 YEARS
     Route: 041
  6. THALOMID [Suspect]
     Active Substance: THALIDOMIDE
     Indication: OFF LABEL USE
     Route: 048
  7. RITUXIMAB. [Concomitant]
     Active Substance: RITUXIMAB
     Indication: MANTLE CELL LYMPHOMA STAGE IV
     Dosage: WEEKLY 4, REPEATED EVERY 6 MONTHS FOR 3 YEARS
     Route: 041
  8. THALOMID [Suspect]
     Active Substance: THALIDOMIDE
     Indication: MANTLE CELL LYMPHOMA STAGE IV
     Dosage: 200 MILLIGRAM
     Route: 048
     Dates: start: 20040915, end: 20061004
  9. VINCRISTINE [Concomitant]
     Active Substance: VINCRISTINE
     Indication: MANTLE CELL LYMPHOMA STAGE IV
     Dosage: WEEKLY 4, REPEATED EVERY 6 MONTHS FOR 3 YEARS
     Route: 041
  10. CYTARABINE. [Concomitant]
     Active Substance: CYTARABINE
     Indication: MANTLE CELL LYMPHOMA STAGE IV
     Dosage: WEEKLY 4, REPEATED EVERY 6 MONTHS FOR 3 YEARS
     Route: 041

REACTIONS (1)
  - Non-small cell lung cancer metastatic [Fatal]

NARRATIVE: CASE EVENT DATE: 20060223
